FAERS Safety Report 4940050-X (Version None)
Quarter: 2006Q1

REPORT INFORMATION
  Report Type: 
  Country: None (occurrence: None)
  Receive Date: 20060310
  Receipt Date: 20060214
  Transmission Date: 20060701
  Serious: Yes (Hospitalization)
  Sender: FDA-Public Use
  Company Number: JP-ROCHE-437141

PATIENT
  Age: 74 Year

DRUGS (1)
  1. TAMIFLU [Suspect]
     Route: 048
     Dates: start: 20060208, end: 20060210

REACTIONS (2)
  - ABNORMAL BEHAVIOUR [None]
  - FEMUR FRACTURE [None]
